FAERS Safety Report 19683435 (Version 1)
Quarter: 2021Q3

REPORT INFORMATION
  Report Type: Spontaneous
  Country: IN (occurrence: IN)
  Receive Date: 20210811
  Receipt Date: 20210811
  Transmission Date: 20211014
  Serious: Yes (Other)
  Sender: FDA-Public Use
  Company Number: IN-LUPIN PHARMACEUTICALS INC.-2021-13768

PATIENT
  Age: 33 Year
  Sex: Female

DRUGS (4)
  1. RIFAMPIN. [Suspect]
     Active Substance: RIFAMPIN
     Dosage: UNK, RESTARTED
     Route: 065
     Dates: end: 2019
  2. TENOFOVIR [Concomitant]
     Active Substance: TENOFOVIR
     Indication: CHRONIC HEPATITIS B
     Dosage: UNK
     Route: 065
  3. ITRACONAZOLE. [Concomitant]
     Active Substance: ITRACONAZOLE
     Indication: HISTOPLASMOSIS DISSEMINATED
     Dosage: UNK
     Route: 065
     Dates: start: 2019
  4. RIFAMPIN. [Suspect]
     Active Substance: RIFAMPIN
     Indication: INTESTINAL TUBERCULOSIS
     Dosage: UNK, MISSED HER ATT THERAPY FOR 15 DAYS
     Route: 065
     Dates: start: 201906, end: 2019

REACTIONS (2)
  - Product dose omission issue [Unknown]
  - Thrombocytopenia [Recovering/Resolving]

NARRATIVE: CASE EVENT DATE: 2019
